FAERS Safety Report 23315503 (Version 1)
Quarter: 2023Q4

REPORT INFORMATION
  Report Type: Spontaneous
  Country: US (occurrence: US)
  Receive Date: 20231219
  Receipt Date: 20231219
  Transmission Date: 20240110
  Serious: No
  Sender: FDA-Public Use
  Company Number: US-ORG100016242-2023000188

PATIENT

DRUGS (3)
  1. EXPAREL [Suspect]
     Active Substance: BUPIVACAINE
     Indication: Nerve block
     Route: 065
  2. BUPIVACAINE [Suspect]
     Active Substance: BUPIVACAINE
     Indication: Laparotomy
     Dosage: NOT PROVIDED
     Route: 065
  3. BUPIVACAINE [Suspect]
     Active Substance: BUPIVACAINE
     Indication: Laparotomy
     Route: 065

REACTIONS (1)
  - Product administration error [Not Recovered/Not Resolved]
